FAERS Safety Report 4861125-X (Version None)
Quarter: 2005Q4

REPORT INFORMATION
  Report Type: 
  Country: None (occurrence: None)
  Receive Date: 20051216
  Receipt Date: 20051206
  Transmission Date: 20060501
  Serious: Yes (Other)
  Sender: FDA-Public Use
  Company Number: 2005166434

PATIENT
  Sex: Female

DRUGS (3)
  1. DEPO-PROVERA [Suspect]
     Indication: CONTRACEPTION
     Dosage: 150 MG (150 MG, 1ST INJECTION, EVERY 3 MONTHS), INTRAMUSCULAR
     Route: 030
     Dates: start: 20041108, end: 20041108
  2. NORFLOXACIN [Concomitant]
  3. GENTAMICIN SULFATE [Concomitant]

REACTIONS (3)
  - AMENORRHOEA [None]
  - HYPOMENORRHOEA [None]
  - KIDNEY INFECTION [None]
